FAERS Safety Report 7618645-4 (Version None)
Quarter: 2011Q3

REPORT INFORMATION
  Report Type: 
  Country: None (occurrence: None)
  Receive Date: 20110718
  Receipt Date: 20110711
  Transmission Date: 20111222
  Serious: Yes (Other)
  Sender: FDA-Public Use
  Company Number: US-BAYER-2011-027535

PATIENT
  Age: 21 Year
  Sex: Female
  Weight: 62.585 kg

DRUGS (4)
  1. COUMADIN [Concomitant]
     Indication: HYPERCOAGULATION
  2. MIRENA [Suspect]
     Indication: MENORRHAGIA
     Dosage: 20 MCG/24HR, CONT
     Route: 015
     Dates: start: 20101207
  3. MIRENA [Suspect]
     Indication: CONTRACEPTION
  4. COUMADIN [Concomitant]
     Indication: COAGULATION FACTOR DEFICIENCY
     Dosage: 7.5 MG, UNK
     Route: 048

REACTIONS (3)
  - DEVICE EXPULSION [None]
  - GENITAL HAEMORRHAGE [None]
  - ABDOMINAL PAIN [None]
